FAERS Safety Report 14299003 (Version 1)
Quarter: 2017Q4

REPORT INFORMATION
  Report Type: Spontaneous
  Country: US (occurrence: US)
  Receive Date: 20171217
  Receipt Date: 20171217
  Transmission Date: 20180321
  Serious: Yes (Disabling)
  Sender: FDA-Public Use
  Company Number: None

PATIENT
  Age: 53 Year
  Sex: Male
  Weight: 91.35 kg

DRUGS (1)
  1. CIPROFLOXACIN HCL [Suspect]
     Active Substance: CIPROFLOXACIN HYDROCHLORIDE
     Indication: PROSTATIC PAIN
     Dosage: ?          QUANTITY:84 TABLET(S);?
     Route: 048
     Dates: start: 20150803, end: 20150912

REACTIONS (12)
  - Arthralgia [None]
  - Muscle atrophy [None]
  - Exercise tolerance decreased [None]
  - Muscular weakness [None]
  - Neuralgia [None]
  - Muscle tightness [None]
  - Back pain [None]
  - Hypoaesthesia [None]
  - Tendon pain [None]
  - Pain [None]
  - Myalgia [None]
  - Paraesthesia [None]

NARRATIVE: CASE EVENT DATE: 20150812
